FAERS Safety Report 16833651 (Version 3)
Quarter: 2019Q4

REPORT INFORMATION
  Report Type: Spontaneous
  Country: US (occurrence: US)
  Receive Date: 20190920
  Receipt Date: 20191114
  Transmission Date: 20200122
  Serious: No
  Sender: FDA-Public Use
  Company Number: US-ASTRAZENECA-2019SF28493

PATIENT
  Sex: Female

DRUGS (1)
  1. SYMBICORT [Suspect]
     Active Substance: BUDESONIDE\FORMOTEROL FUMARATE DIHYDRATE
     Indication: ASTHMA
     Dosage: 160 4.5 MCG 2 PUFFS TWICE A DAY
     Route: 055
     Dates: start: 2017

REACTIONS (4)
  - Device failure [Unknown]
  - Drug delivery system malfunction [Unknown]
  - Wrong technique in product usage process [Unknown]
  - Cataract [Unknown]
